FAERS Safety Report 9729714 (Version 1)
Quarter: 2013Q4

REPORT INFORMATION
  Report Type: Spontaneous
  Country: US (occurrence: US)
  Receive Date: 20131204
  Receipt Date: 20131204
  Transmission Date: 20140711
  Serious: No
  Sender: FDA-Public Use
  Company Number: US-GILEAD-2009-0021748

PATIENT
  Age: 88 Year
  Sex: Female

DRUGS (3)
  1. LETAIRIS [Suspect]
     Indication: PULMONARY ARTERIAL HYPERTENSION
     Route: 048
  2. HYDROCHLOROTHIAZIDE [Concomitant]
  3. PREVACID [Concomitant]

REACTIONS (3)
  - Nasal congestion [Unknown]
  - Flushing [Unknown]
  - Dyspnoea [Unknown]
